FAERS Safety Report 10881128 (Version 1)
Quarter: 2015Q1

REPORT INFORMATION
  Report Type: Spontaneous
  Country: US (occurrence: None)
  Receive Date: 20150225
  Receipt Date: 20150225
  Transmission Date: 20150721
  Serious: Yes (Other)
  Sender: FDA-Public Use
  Company Number: None

PATIENT
  Age: 31 Year
  Sex: Male
  Weight: 68.04 kg

DRUGS (1)
  1. SUBOXONE [Suspect]
     Active Substance: BUPRENORPHINE HYDROCHLORIDE\NALOXONE HYDROCHLORIDE
     Indication: DRUG DEPENDENCE
     Dosage: 1/3
     Route: 060

REACTIONS (3)
  - Palpitations [None]
  - Vertigo [None]
  - Arrhythmia [None]

NARRATIVE: CASE EVENT DATE: 20120917
